FAERS Safety Report 20517675 (Version 1)
Quarter: 2022Q1

REPORT INFORMATION
  Report Type: Spontaneous
  Country: US (occurrence: US)
  Receive Date: 20220225
  Receipt Date: 20220225
  Transmission Date: 20220423
  Serious: Yes (Death)
  Sender: FDA-Public Use
  Company Number: US-JNJFOC-20220243279

PATIENT
  Age: 51 Year
  Sex: Male

DRUGS (1)
  1. SPRAVATO [Suspect]
     Active Substance: ESKETAMINE
     Indication: Depression

REACTIONS (3)
  - Completed suicide [Fatal]
  - Product dose omission issue [Unknown]
  - COVID-19 [Unknown]

NARRATIVE: CASE EVENT DATE: 20200701
